FAERS Safety Report 7782187-6 (Version None)
Quarter: 2011Q3

REPORT INFORMATION
  Report Type: 
  Country: None (occurrence: None)
  Receive Date: 20110927
  Receipt Date: 20110922
  Transmission Date: 20111222
  Serious: Yes (Life-Threatening, Hospitalization)
  Sender: FDA-Public Use
  Company Number: FR-AMGEN GMBH-KDC438305

PATIENT
  Age: 19 Year
  Sex: Female
  Weight: 60 kg

DRUGS (7)
  1. IG GAMMA [Concomitant]
     Dosage: 60 G, UNK
     Route: 042
     Dates: start: 20100722
  2. METHYLPREDNISOLONE [Concomitant]
     Dosage: 16 MG, UNK
     Route: 048
     Dates: start: 20100906
  3. MABTHERA [Concomitant]
     Dosage: 1 G, UNK
     Route: 014
     Dates: start: 20100825, end: 20100906
  4. CORTICOSTEROID NOS [Concomitant]
     Dosage: UNK UNK, QD
     Dates: start: 20100722
  5. MAGNESIUM [Concomitant]
     Dosage: UNK
     Route: 042
     Dates: start: 20100806, end: 20100817
  6. ROMIPLOSTIM [Suspect]
     Indication: IDIOPATHIC THROMBOCYTOPENIC PURPURA
     Dosage: 3 MUG/KG, QWK
     Route: 058
     Dates: start: 20100806, end: 20100907
  7. LEVONORGESTREL + ETHINYL ESTRADIOL [Suspect]
     Dosage: .5 MG, UNK
     Route: 048
     Dates: start: 20080101, end: 20100911

REACTIONS (2)
  - PULMONARY EMBOLISM [None]
  - THROMBOCYTOSIS [None]
